FAERS Safety Report 5959624-2 (Version None)
Quarter: 2008Q4

REPORT INFORMATION
  Report Type: 
  Country: None (occurrence: None)
  Receive Date: 20081106
  Receipt Date: 20080311
  Transmission Date: 20090506
  Serious: Yes (Hospitalization)
  Sender: FDA-Public Use
  Company Number: US200803002557

PATIENT
  Sex: Female

DRUGS (1)
  1. PROZAC [Suspect]
     Indication: BORDERLINE PERSONALITY DISORDER
     Dosage: UNK

REACTIONS (1)
  - SUICIDAL IDEATION [None]
